FAERS Safety Report 8813451 (Version 1)
Quarter: 2012Q4

REPORT INFORMATION
  Report Type: 
  Country: US (occurrence: US)
  Receive Date: 20120927
  Receipt Date: 20120927
  Transmission Date: 20130627
  Serious: No
  Sender: FDA-Public Use
  Company Number: US-AMGEN-USASP2012046303

PATIENT
  Age: 80 Year
  Sex: Female

DRUGS (5)
  1. PROLIA [Suspect]
     Indication: OSTEOPOROSIS
     Dosage: 60 mg, q6mo
     Dates: start: 20120511
  2. ANTINEOPLASTIC AGENTS [Concomitant]
     Indication: OVARIAN CANCER
     Dosage: UNK
     Dates: start: 2004
  3. LOMOTIL [Concomitant]
     Indication: DIARRHOEA
     Dosage: UNK
  4. VITAMIN D [Concomitant]
     Dosage: UNK
  5. CALCIUM [Concomitant]
     Dosage: UNK

REACTIONS (6)
  - Feeling abnormal [Not Recovered/Not Resolved]
  - Gait disturbance [Not Recovered/Not Resolved]
  - Muscle spasms [Not Recovered/Not Resolved]
  - Back pain [Not Recovered/Not Resolved]
  - Asthenia [Not Recovered/Not Resolved]
  - Pain in extremity [Not Recovered/Not Resolved]
